FAERS Safety Report 21986449 (Version 1)
Quarter: 2023Q1

REPORT INFORMATION
  Report Type: Spontaneous
  Country: AT (occurrence: AT)
  Receive Date: 20230213
  Receipt Date: 20230213
  Transmission Date: 20230417
  Serious: Yes (Death, Other)
  Sender: FDA-Public Use
  Company Number: AT-PFIZER INC-202300022114

PATIENT
  Age: 15 Year
  Sex: Female

DRUGS (9)
  1. CISPLATIN [Suspect]
     Active Substance: CISPLATIN
     Indication: Osteosarcoma
     Dosage: 90 MILLIGRAM/SQ. METER, (90 MG/M2, CYCLIC)
     Route: 065
  2. METHOTREXATE [Suspect]
     Active Substance: METHOTREXATE
     Indication: Osteosarcoma
     Dosage: 12 G/M2/CY 14 CYCLES
     Route: 042
  3. DACTINOMYCIN [Suspect]
     Active Substance: DACTINOMYCIN
     Indication: Osteosarcoma
     Dosage: 600 MICROGRAM/SQ.METER, QD 600 MCG/M2/DAYX2DAYS
     Route: 065
  4. CYCLOPHOSPHAMIDE [Suspect]
     Active Substance: CYCLOPHOSPHAMIDE
     Indication: Osteosarcoma
     Dosage: 600 MILLIGRAM/SQ.METER, QD (600 MG/M2 DAILYX 2D)
     Route: 065
  5. VINCRISTINE SULFATE [Suspect]
     Active Substance: VINCRISTINE SULFATE
     Indication: Osteosarcoma
     Dosage: 1.5 MILLIGRAM/SQ. METER(1.5 MG/M2, CYCLIC)
     Route: 065
  6. IFOSFAMIDE [Suspect]
     Active Substance: IFOSFAMIDE
     Indication: Osteosarcoma
     Dosage: 2 G/M2/DAY X 5 DAYS
     Route: 065
  7. BLEOMYCIN [Suspect]
     Active Substance: BLEOMYCIN SULFATE
     Indication: Osteosarcoma
     Dosage: 15 MILLIGRAM/SQ.METER,QD(15 MG/M2, DAILYX2DAYS)
     Route: 065
  8. ADRIAMYCIN [Suspect]
     Active Substance: DOXORUBICIN HYDROCHLORIDE
     Indication: Osteosarcoma
     Dosage: 90 MILLIGRAM/SQ. METER(90 MG/M2, CYCLIC)
     Route: 065
  9. LEUCOVORIN CALCIUM [Suspect]
     Active Substance: LEUCOVORIN CALCIUM
     Indication: Osteosarcoma
     Dosage: 18 G/M2, CYCLIC
     Route: 065

REACTIONS (2)
  - Hepatic failure [Fatal]
  - Neurotoxicity [Fatal]
